FAERS Safety Report 5598376-5 (Version None)
Quarter: 2008Q1

REPORT INFORMATION
  Report Type: 
  Country: None (occurrence: None)
  Receive Date: 20080122
  Receipt Date: 20080115
  Transmission Date: 20080703
  Serious: Yes (Death)
  Sender: FDA-Public Use
  Company Number: FR-GENENTECH-254265

PATIENT
  Sex: Female

DRUGS (4)
  1. EFALIZUMAB [Suspect]
     Indication: PSORIASIS
     Dosage: 0.9 ML, 1/WEEK
     Route: 058
     Dates: start: 20060501, end: 20071010
  2. DIOSMIN [Concomitant]
     Indication: VENOUS STASIS
     Dosage: 2 UNK, QD
     Route: 048
     Dates: start: 20040101
  3. ETONOGESTREL [Concomitant]
     Indication: CONTRACEPTION
     Dosage: 1 UNK, QD
     Route: 023
     Dates: start: 20061101
  4. BROMAZEPAM [Concomitant]
     Indication: DRUG USE FOR UNKNOWN INDICATION
     Dosage: 0.25 UNK, QD

REACTIONS (4)
  - DEATH [None]
  - HYPERTRIGLYCERIDAEMIA [None]
  - PNEUMONIA PRIMARY ATYPICAL [None]
  - TRANSAMINASES INCREASED [None]
